FAERS Safety Report 8295402-X (Version None)
Quarter: 2012Q2

REPORT INFORMATION
  Report Type: 
  Country: None (occurrence: None)
  Receive Date: 20120418
  Receipt Date: 20120412
  Transmission Date: 20120825
  Serious: Yes (Other)
  Sender: FDA-Public Use
  Company Number: US-BAYER-200940688NA

PATIENT
  Age: 37 Year
  Sex: Female
  Weight: 82 kg

DRUGS (34)
  1. LEXAPRO [Concomitant]
     Dosage: 20 MG, QD
     Route: 048
  2. IBUPROFEN [Concomitant]
     Dosage: 200MG-800MG, EVERY FOUR TO SIX HRS
     Route: 048
  3. CLONAZEPAM [Concomitant]
     Dosage: 0.5 MG, UNK
     Route: 048
  4. PROZAC [Concomitant]
  5. CLONIDINE [Concomitant]
  6. BENZODIAZEPINE [Concomitant]
  7. NEURONTIN [Concomitant]
     Dosage: 600 MG, TID
     Route: 048
  8. NORVASC [Concomitant]
     Dosage: 10 MG, QD
     Route: 048
  9. ADVAIR DISKUS 100/50 [Concomitant]
     Dosage: 250MCG/50 ONE PUFF
     Route: 048
  10. FLONASE [Concomitant]
     Dosage: 1 PUFF EACH NOSTRIL
  11. PREVACID [Concomitant]
     Dosage: 30 MG, QD
     Route: 048
  12. BENZODIAZEPINE [Concomitant]
  13. INSULIN [Concomitant]
  14. LOSARTAN POTASSIUM [Concomitant]
  15. ASPIRIN [Concomitant]
     Dosage: 325 MG, QD
     Route: 048
  16. INSULIN [INSULIN] [Concomitant]
  17. ELAVIL [Concomitant]
  18. PRILOSEC [Concomitant]
  19. VANCOMYCIN [Concomitant]
     Dosage: UNK
     Route: 042
     Dates: start: 20060526, end: 20060626
  20. LASIX [Concomitant]
  21. COZAAR [Concomitant]
     Dosage: 100 MG, QD
     Route: 048
  22. TRAZODONE HCL [Concomitant]
  23. TRASYLOL [Suspect]
     Indication: ANOMALOUS PULMONARY VENOUS CONNECTION
  24. VALTREX [Concomitant]
     Dosage: 500 MG, QD
     Route: 048
  25. ZOLOFT [Concomitant]
  26. METHOTREXATE [Concomitant]
  27. TRASYLOL [Suspect]
     Indication: ATRIAL SEPTAL DEFECT REPAIR
  28. PIROXICAM [Concomitant]
     Dosage: 20 MG, QD
     Route: 048
  29. HYDROXYCHLOROQUINE SULFATE [Concomitant]
     Dosage: 200 MG, BID
     Route: 048
  30. CELEBREX [Concomitant]
     Indication: ARTHRITIS
  31. ALBUTEROL [Concomitant]
     Dosage: 2 PUFF(S), Q4HR AS NECESSARY
     Route: 048
  32. PROCARDIA [Concomitant]
  33. TRASYLOL [Suspect]
     Indication: CORONARY ARTERY BYPASS
     Dosage: 1 ML TEST DOSE AND LOADING DOSE 100 CC OVER 30 MINUTES FOLLOWED BY 25 CC/HR INFUSION
     Route: 042
     Dates: start: 20060607, end: 20060607
  34. LIPITOR [Concomitant]
     Dosage: 80 MG, QD
     Route: 048

REACTIONS (12)
  - PSYCHOLOGICAL TRAUMA [None]
  - EMOTIONAL DISTRESS [None]
  - RENAL IMPAIRMENT [None]
  - STRESS [None]
  - FEAR [None]
  - PAIN [None]
  - RENAL INJURY [None]
  - UNEVALUABLE EVENT [None]
  - ANHEDONIA [None]
  - RENAL FAILURE [None]
  - ANXIETY [None]
  - INJURY [None]
